FAERS Safety Report 5871619-6 (Version None)
Quarter: 2008Q3

REPORT INFORMATION
  Report Type: 
  Country: None (occurrence: None)
  Receive Date: 20080902
  Receipt Date: 20080815
  Transmission Date: 20090109
  Serious: Yes (Other)
  Sender: FDA-Public Use
  Company Number: 2008SP016616

PATIENT
  Age: 40 Year
  Sex: Male

DRUGS (1)
  1. TEMODAL [Suspect]
     Indication: DRUG USE FOR UNKNOWN INDICATION

REACTIONS (4)
  - BLOOD ALKALINE PHOSPHATASE INCREASED [None]
  - BONE SCAN ABNORMAL [None]
  - ILL-DEFINED DISORDER [None]
  - NEPHROLITHIASIS [None]
